FAERS Safety Report 5834037-2 (Version None)
Quarter: 2008Q3

REPORT INFORMATION
  Report Type: 
  Country: None (occurrence: None)
  Receive Date: 20080805
  Receipt Date: 20080724
  Transmission Date: 20090109
  Serious: Yes (Death)
  Sender: FDA-Public Use
  Company Number: AT-PURDUE-DEU_2008_0004148

PATIENT
  Age: 18 Year
  Sex: Male
  Weight: 90 kg

DRUGS (4)
  1. MORPHINE [Suspect]
     Indication: DRUG DEPENDENCE
     Route: 042
     Dates: end: 20080301
  2. BUTANE [Suspect]
     Indication: SUBSTANCE ABUSE
     Route: 055
  3. HEROIN [Suspect]
     Indication: DRUG DEPENDENCE
     Route: 065
  4. PROPANE [Suspect]
     Indication: SUBSTANCE ABUSE
     Route: 055

REACTIONS (5)
  - DRUG DEPENDENCE [None]
  - HAEMATEMESIS [None]
  - MULTIPLE DRUG OVERDOSE [None]
  - RESPIRATORY PARALYSIS [None]
  - SUBSTANCE ABUSE [None]
